FAERS Safety Report 23333294 (Version 1)
Quarter: 2023Q4

REPORT INFORMATION
  Report Type: Spontaneous
  Country: US (occurrence: US)
  Receive Date: 20231222
  Receipt Date: 20231222
  Transmission Date: 20240109
  Serious: No
  Sender: FDA-Public Use
  Company Number: US-CTI BIOPHARMA-2023US04300

PATIENT

DRUGS (18)
  1. VONJO [Suspect]
     Active Substance: PACRITINIB
     Indication: Chronic myelomonocytic leukaemia
     Dosage: 200 MG, BID
     Dates: start: 202310
  2. VONJO [Suspect]
     Active Substance: PACRITINIB
     Dosage: 100 MG, BID
     Route: 048
  3. ZOFRAN [Concomitant]
     Active Substance: ONDANSETRON HYDROCHLORIDE
  4. ZOLPIDEM [Concomitant]
     Active Substance: ZOLPIDEM TARTRATE
  5. XIIDRA [Concomitant]
     Active Substance: LIFITEGRAST
  6. PREDNISONE [Concomitant]
     Active Substance: PREDNISONE
  7. PEPCID [Concomitant]
     Active Substance: FAMOTIDINE
     Route: 048
  8. PAROXETINE [Concomitant]
     Active Substance: PAROXETINE
  9. OXYCODONE [Concomitant]
     Active Substance: OXYCODONE
  10. VITAMINS [Concomitant]
     Active Substance: VITAMINS
  11. MONTELUKAST [Concomitant]
     Active Substance: MONTELUKAST SODIUM
  12. MAGNESIUM OXIDE [Concomitant]
     Active Substance: MAGNESIUM OXIDE
  13. BUDESONIDE [Concomitant]
     Active Substance: BUDESONIDE
  14. AZITHROMYCIN [Concomitant]
     Active Substance: AZITHROMYCIN
     Dosage: UNK
  15. ARNUITY ELLIPTA [Concomitant]
     Active Substance: FLUTICASONE FUROATE
  16. ALLOPURINOL [Concomitant]
     Active Substance: ALLOPURINOL
  17. ACYCLOVIR [Concomitant]
     Active Substance: ACYCLOVIR
  18. FLONASE [Concomitant]
     Active Substance: FLUTICASONE PROPIONATE

REACTIONS (2)
  - Headache [Not Recovered/Not Resolved]
  - Off label use [Unknown]

NARRATIVE: CASE EVENT DATE: 20231127
